FAERS Safety Report 18970065 (Version 1)
Quarter: 2021Q1

REPORT INFORMATION
  Report Type: Spontaneous
  Country: CN (occurrence: CN)
  Receive Date: 20210304
  Receipt Date: 20210304
  Transmission Date: 20210420
  Serious: Yes (Hospitalization)
  Sender: FDA-Public Use
  Company Number: CN-ELI_LILLY_AND_COMPANY-CN202102010619

PATIENT
  Age: 48 Year
  Sex: Female

DRUGS (4)
  1. GEMZAR [Suspect]
     Active Substance: GEMCITABINE HYDROCHLORIDE
     Indication: BLADDER CANCER
     Dosage: 1600 MG, SINGLE
     Route: 041
     Dates: start: 20201231, end: 20210107
  2. CISPLATIN. [Suspect]
     Active Substance: CISPLATIN
     Indication: BLADDER CANCER
     Dosage: 30 MG, SINGLE
     Route: 041
     Dates: start: 20201231, end: 20210103
  3. SODIUM CHLORIDE. [Concomitant]
     Active Substance: SODIUM CHLORIDE
     Indication: VEHICLE SOLUTION USE
     Dosage: 250 ML, SINGLE
     Route: 041
     Dates: start: 20201231, end: 20210107
  4. SODIUM CHLORIDE. [Concomitant]
     Active Substance: SODIUM CHLORIDE
     Dosage: 500 ML, SINGLE
     Route: 041
     Dates: start: 20201231, end: 20210103

REACTIONS (4)
  - Myelosuppression [Recovering/Resolving]
  - Chest discomfort [Recovering/Resolving]
  - Discomfort [Recovering/Resolving]
  - Tachycardia [Recovering/Resolving]

NARRATIVE: CASE EVENT DATE: 202101
